FAERS Safety Report 9438336 (Version 1)
Quarter: 2013Q3

REPORT INFORMATION
  Report Type: Spontaneous
  Country: CA (occurrence: CA)
  Receive Date: 20130802
  Receipt Date: 20130802
  Transmission Date: 20140515
  Serious: Yes (Hospitalization)
  Sender: FDA-Public Use
  Company Number: CA-B.I. PHARMACEUTICALS,INC./RIDGEFIELD-2013-CN-01323CN

PATIENT
  Sex: 0

DRUGS (2)
  1. SPIRIVA [Suspect]
  2. SPIRIVA [Suspect]
     Dosage: 18 MCG
     Route: 048

REACTIONS (3)
  - Hospitalisation [Recovered/Resolved]
  - Confusional state [Unknown]
  - Incorrect route of drug administration [Unknown]
